FAERS Safety Report 18350898 (Version 1)
Quarter: 2020Q4

REPORT INFORMATION
  Report Type: Spontaneous
  Country: IE (occurrence: IE)
  Receive Date: 20201006
  Receipt Date: 20201006
  Transmission Date: 20210114
  Serious: Yes (Death, Other)
  Sender: FDA-Public Use
  Company Number: IE-PFIZER INC-2020382639

PATIENT
  Age: 37 Year
  Sex: Female
  Weight: 102 kg

DRUGS (3)
  1. LEFLUNOMIDE. [Suspect]
     Active Substance: LEFLUNOMIDE
     Indication: STILL^S DISEASE
     Dosage: UNK
  2. PREDNISOLONE. [Suspect]
     Active Substance: PREDNISOLONE
     Indication: STILL^S DISEASE
  3. XELJANZ [Suspect]
     Active Substance: TOFACITINIB CITRATE
     Indication: STILL^S DISEASE
     Dosage: UNK

REACTIONS (4)
  - Off label use [Unknown]
  - Pneumonia [Fatal]
  - Staphylococcal sepsis [Fatal]
  - Product use in unapproved indication [Unknown]
